FAERS Safety Report 8495806-6 (Version None)
Quarter: 2012Q3

REPORT INFORMATION
  Report Type: 
  Country: None (occurrence: None)
  Receive Date: 20120709
  Receipt Date: 20120702
  Transmission Date: 20120928
  Serious: Yes (Other)
  Sender: FDA-Public Use
  Company Number: US-ROCHE-GNE322744

PATIENT
  Sex: Female
  Weight: 66.738 kg

DRUGS (7)
  1. LOVENOX [Concomitant]
     Indication: THROMBOSIS
     Dosage: UNK
  2. HYDROCODONE [Concomitant]
     Indication: BACK PAIN
  3. PROAIR HFA [Concomitant]
     Indication: ASTHMA
     Dosage: UNK
  4. OMALIZUMAB [Suspect]
     Indication: ASTHMA
     Dosage: MOST RECENT XOLAIR DOSE 18/OCT/2011.
     Route: 058
     Dates: start: 20091125, end: 20111018
  5. TYLENOL W/ CODEINE [Concomitant]
     Indication: BACK PAIN
  6. SINGULAIR [Concomitant]
     Indication: ASTHMA
     Dosage: UNK
  7. ALVESCO [Concomitant]
     Indication: ASTHMA
     Dosage: UNK

REACTIONS (5)
  - UPPER RESPIRATORY TRACT INFECTION [None]
  - POLYHYDRAMNIOS [None]
  - GESTATIONAL DIABETES [None]
  - UTERINE SPASM [None]
  - MATERNAL EXPOSURE DURING PREGNANCY [None]
